FAERS Safety Report 10173378 (Version 2)
Quarter: 2014Q2

REPORT INFORMATION
  Report Type: Spontaneous
  Country: US (occurrence: None)
  Receive Date: 20140416
  Receipt Date: 20140604
  Transmission Date: 20141212
  Serious: Yes (Other)
  Sender: FDA-Public Use
  Company Number: 163-POMAL-14014238

PATIENT
  Age: 69 Year
  Sex: Female

DRUGS (12)
  1. POMALYST [Suspect]
     Indication: PLASMA CELL MYELOMA
     Dosage: 3 MG, 21 IN 21 D, PO
     Route: 048
     Dates: start: 20131105
  2. ABILIFY [Concomitant]
  3. BACTRIM DS (BACTRIM) (UNKNOWN) [Concomitant]
  4. CLONAZEPAM (CLONAZEPAM) (UNKNOWN) [Concomitant]
  5. CYTOXIN (CYCLOPHOSPHAMIDE) (UNKNOWN) [Concomitant]
  6. LEVAQUIN (LEVOFLOXACIN) (UNKNOWN) [Concomitant]
  7. METOPROLOL SUCCINATE (METOPROLOL SUCCINATE) (UNKNOWN) [Concomitant]
  8. PAXIL (PAROXETINE HYDROCHLORIDE) (UNKNOWN) [Concomitant]
  9. PEPCID (FAMOTIDINE) (UNKNOWN) [Concomitant]
  10. PRAVASTATIN (PRAVASTATIN) (UNKNOWN) [Concomitant]
  11. VALTREX (VALACICLOVIR HYDROCHLORIDE) (UNKNOWN) [Concomitant]
  12. XANAX (ALPRAZOLAM) (UNKNOWN) [Concomitant]

REACTIONS (1)
  - Thrombocytopenia [None]
